FAERS Safety Report 6625198-6 (Version None)
Quarter: 2010Q1

REPORT INFORMATION
  Report Type: 
  Country: None (occurrence: None)
  Receive Date: 20100310
  Receipt Date: 20090909
  Transmission Date: 20100710
  Serious: No
  Sender: FDA-Public Use
  Company Number: US-BIOGENIDEC-2009BI028677

PATIENT
  Age: 39 Year
  Sex: Female

DRUGS (2)
  1. AVONEX [Suspect]
     Indication: MULTIPLE SCLEROSIS
     Route: 030
     Dates: start: 20090827
  2. ASPIRIN [Concomitant]
     Indication: CARDIAC PERFORATION
     Route: 048

REACTIONS (5)
  - ABASIA [None]
  - MUSCLE TWITCHING [None]
  - NAUSEA [None]
  - PYREXIA [None]
  - STRESS [None]
